FAERS Safety Report 22115962 (Version 1)
Quarter: 2023Q1

REPORT INFORMATION
  Report Type: Spontaneous
  Country: US (occurrence: US)
  Receive Date: 20230320
  Receipt Date: 20230320
  Transmission Date: 20230417
  Serious: No
  Sender: FDA-Public Use
  Company Number: US-PFIZER INC-PV202300031880

PATIENT
  Age: 74 Year
  Sex: Female
  Weight: 112.47 kg

DRUGS (4)
  1. BRAFTOVI [Suspect]
     Active Substance: ENCORAFENIB
     Indication: Skin cancer
     Dosage: 6 DF (6 PILLS)
     Dates: start: 2022
  2. BRAFTOVI [Suspect]
     Active Substance: ENCORAFENIB
     Dosage: 300 MG, DAILY (TAKES 4 PILLS EACH DAY OF EACH MEDICATION)
  3. MEKTOVI [Suspect]
     Active Substance: BINIMETINIB
     Indication: Skin cancer
     Dosage: 6 DF (6 PILLS)
     Dates: start: 2022
  4. MEKTOVI [Suspect]
     Active Substance: BINIMETINIB
     Dosage: 60 MG, DAILY (TAKES 4 PILLS EACH DAY OF EACH MEDICATION)

REACTIONS (3)
  - Illness [Recovered/Resolved]
  - Rash [Recovered/Resolved]
  - Urticaria [Recovered/Resolved]

NARRATIVE: CASE EVENT DATE: 20220101
